FAERS Safety Report 5254102-0 (Version None)
Quarter: 2007Q1

REPORT INFORMATION
  Report Type: 
  Country: None (occurrence: None)
  Receive Date: 20070302
  Receipt Date: 20070220
  Transmission Date: 20070707
  Serious: Yes (Other)
  Sender: FDA-Public Use
  Company Number: PHEH2007US02238

PATIENT
  Age: 67 Year
  Sex: Female

DRUGS (1)
  1. SANDOSTATIN LAR [Suspect]
     Indication: CARCINOID SYNDROME
     Dosage: 40 MG Q3WEEKS
     Dates: start: 20020901

REACTIONS (4)
  - BIOPSY BREAST ABNORMAL [None]
  - BREAST CANCER [None]
  - DIARRHOEA [None]
  - MALIGNANT BREAST LUMP REMOVAL [None]
